FAERS Safety Report 7353579-4 (Version None)
Quarter: 2011Q1

REPORT INFORMATION
  Report Type: 
  Country: None (occurrence: None)
  Receive Date: 20110315
  Receipt Date: 20110216
  Transmission Date: 20110831
  Serious: No
  Sender: FDA-Public Use
  Company Number: US-B.I. PHARMACEUTICALS,INC./RIDGEFIELD-2011-BP-06050BP

PATIENT
  Age: 55 Year
  Sex: Male

DRUGS (6)
  1. NEBULIZER WITH ALBUTEROL [Concomitant]
     Indication: LUNG DISORDER
  2. SYMBICORT [Concomitant]
     Indication: LUNG DISORDER
  3. PULMICORT [Concomitant]
     Indication: LUNG DISORDER
  4. SPIRIVA [Suspect]
     Indication: CHRONIC OBSTRUCTIVE PULMONARY DISEASE
     Dosage: 18 MCG
  5. PROAIR HFA [Concomitant]
     Indication: LUNG DISORDER
  6. OMEPRAZOLE [Concomitant]
     Indication: INFLAMMATION

REACTIONS (1)
  - DRUG INEFFECTIVE [None]
